FAERS Safety Report 5130385-2 (Version None)
Quarter: 2006Q4

REPORT INFORMATION
  Report Type: 
  Country: None (occurrence: None)
  Receive Date: 20061019
  Receipt Date: 20061013
  Transmission Date: 20070319
  Serious: Yes (Other)
  Sender: FDA-Public Use
  Company Number: 2006AC01871

PATIENT
  Age: 1868 Day
  Sex: Male

DRUGS (3)
  1. PULMICORT [Suspect]
     Indication: ASTHMA
     Route: 055
     Dates: start: 20060110, end: 20060310
  2. VENTOLIN [Concomitant]
  3. CETIRIZINE HCL [Concomitant]

REACTIONS (1)
  - RESPIRATORY SIGHS [None]
